FAERS Safety Report 8372990-6 (Version None)
Quarter: 2012Q2

REPORT INFORMATION
  Report Type: 
  Country: None (occurrence: None)
  Receive Date: 20120521
  Receipt Date: 20110914
  Transmission Date: 20120825
  Serious: No
  Sender: FDA-Public Use
  Company Number: US-ASTRAZENECA-2011SE63383

PATIENT
  Age: 87 Year
  Sex: Male

DRUGS (2)
  1. PROBIOTIC [Concomitant]
  2. PRILOSEC OTC [Suspect]
     Indication: GASTROOESOPHAGEAL REFLUX DISEASE
     Route: 048

REACTIONS (2)
  - HAEMATOCHEZIA [None]
  - DIARRHOEA [None]
